FAERS Safety Report 8258102-8 (Version None)
Quarter: 2012Q2

REPORT INFORMATION
  Report Type: 
  Country: None (occurrence: None)
  Receive Date: 20120404
  Receipt Date: 20120326
  Transmission Date: 20120825
  Serious: Yes (Hospitalization, Other)
  Sender: FDA-Public Use
  Company Number: US-JNJFOC-20101000346

PATIENT
  Sex: Male

DRUGS (6)
  1. LEVAQUIN [Suspect]
     Route: 048
     Dates: start: 20060701
  2. LEVAQUIN [Suspect]
     Route: 048
  3. LEVAQUIN [Suspect]
     Route: 048
  4. LEVAQUIN [Suspect]
     Indication: PROSTATE INFECTION
     Route: 048
  5. LEVAQUIN [Suspect]
     Route: 048
     Dates: start: 20060701
  6. LEVAQUIN [Suspect]
     Indication: URINARY TRACT INFECTION
     Route: 048

REACTIONS (3)
  - TENDON RUPTURE [None]
  - ARTHROPATHY [None]
  - ROTATOR CUFF SYNDROME [None]
